FAERS Safety Report 7651094-1 (Version None)
Quarter: 2011Q3

REPORT INFORMATION
  Report Type: 
  Country: None (occurrence: None)
  Receive Date: 20110727
  Receipt Date: 20110711
  Transmission Date: 20111222
  Serious: Yes (Hospitalization)
  Sender: FDA-Public Use
  Company Number: 2011MA008579

PATIENT
  Age: 42 Year
  Sex: Female

DRUGS (3)
  1. HYDROCORTISONE CREAM USP, 1% (RX) (ALPHARMA) (HYDROCORTISONE) [Suspect]
     Indication: HYPOPITUITARISM
  2. THYROXINE (NO PREF. NAME) [Suspect]
     Indication: HYPOPITUITARISM
  3. DESMOPRESSIN ACETATE [Suspect]
     Indication: HYPOPITUITARISM

REACTIONS (8)
  - VISUAL FIELD DEFECT [None]
  - PITUITARY ENLARGEMENT [None]
  - HEADACHE [None]
  - HYPERTENSION [None]
  - HYPOPITUITARISM [None]
  - CUSHING'S SYNDROME [None]
  - DIABETES MELLITUS [None]
  - DISEASE RECURRENCE [None]
